FAERS Safety Report 14603454 (Version 1)
Quarter: 2018Q1

REPORT INFORMATION
  Report Type: Spontaneous
  Country: US (occurrence: US)
  Receive Date: 20180305
  Receipt Date: 20180305
  Transmission Date: 20180509
  Serious: Yes (Life-Threatening, Hospitalization, Other)
  Sender: FDA-Public Use
  Company Number: None

PATIENT
  Age: 62 Year
  Sex: Female
  Weight: 63 kg

DRUGS (3)
  1. ZOLEDRONIC ACID 5MG IV ONCE [Concomitant]
     Dates: start: 20170306, end: 20170306
  2. TERIPARATIDE [Suspect]
     Active Substance: TERIPARATIDE
     Indication: OSTEOPOROSIS POSTMENOPAUSAL
     Route: 058
  3. DENOSUMAB 60MG SC EVERY 6 MONTHS [Concomitant]
     Dates: start: 20160219, end: 20170306

REACTIONS (6)
  - Anogenital dysplasia [None]
  - Anal polyp [None]
  - Pain [None]
  - Pruritus [None]
  - Intestinal mass [None]
  - Haematochezia [None]

NARRATIVE: CASE EVENT DATE: 20170406
